FAERS Safety Report 14688592 (Version 2)
Quarter: 2018Q2

REPORT INFORMATION
  Report Type: Spontaneous
  Country: ES (occurrence: ES)
  Receive Date: 20180328
  Receipt Date: 20180403
  Transmission Date: 20180711
  Serious: Yes (Life-Threatening, Hospitalization, Other)
  Sender: FDA-Public Use
  Company Number: ES-FERRINGPH-2018FE01323

PATIENT

DRUGS (2)
  1. ANTIEPILEPTICS [Concomitant]
     Active Substance: UNSPECIFIED INGREDIENT
     Indication: EPILEPSY
     Route: 048
  2. PICOPREP [Suspect]
     Active Substance: ANHYDROUS CITRIC ACID\MAGNESIUM OXIDE\SODIUM PICOSULFATE
     Indication: BOWEL PREPARATION
     Dosage: AFTER THE 2ND INTAKE
     Route: 048

REACTIONS (3)
  - Coma [Recovered/Resolved]
  - Pyrexia [Recovered/Resolved]
  - Epilepsy [Not Recovered/Not Resolved]
